FAERS Safety Report 4735275-2 (Version None)
Quarter: 2005Q3

REPORT INFORMATION
  Report Type: 
  Country: None (occurrence: None)
  Receive Date: 20050803
  Receipt Date: 20050721
  Transmission Date: 20060218
  Serious: Yes (Other)
  Sender: FDA-Public Use
  Company Number: 2005105713

PATIENT
  Sex: Female

DRUGS (5)
  1. NEURONTIN [Suspect]
     Indication: ILL-DEFINED DISORDER
  2. ARICEPT [Suspect]
     Indication: ILL-DEFINED DISORDER
  3. XALATAN [Suspect]
     Indication: ILL-DEFINED DISORDER
  4. ZOLOFT [Suspect]
     Indication: ILL-DEFINED DISORDER
  5. SYNTHROID [Concomitant]

REACTIONS (6)
  - ARTHRITIS [None]
  - DIABETES MELLITUS [None]
  - INTERVERTEBRAL DISC PROTRUSION [None]
  - MALAISE [None]
  - PARKINSON'S DISEASE [None]
  - TREMOR [None]
